FAERS Safety Report 17577718 (Version 1)
Quarter: 2020Q1

REPORT INFORMATION
  Report Type: Report from Study
  Country: NL (occurrence: NL)
  Receive Date: 20200324
  Receipt Date: 20200324
  Transmission Date: 20200409
  Serious: Yes (Hospitalization)
  Sender: FDA-Public Use
  Company Number: NL-MYLANLABS-2020M1029688

PATIENT
  Age: 74 Year
  Sex: Male

DRUGS (2)
  1. PREDNISON [Concomitant]
     Active Substance: PREDNISONE
     Dosage: 40MG, 1X/D
     Route: 048
     Dates: start: 20130803, end: 20131209
  2. AZATHIOPRINE. [Suspect]
     Active Substance: AZATHIOPRINE
     Indication: COLITIS ULCERATIVE
     Dosage: 50MG, 4X/D
     Route: 048
     Dates: start: 20131116, end: 20131129

REACTIONS (1)
  - Systemic inflammatory response syndrome [Recovered/Resolved]

NARRATIVE: CASE EVENT DATE: 20131129
